FAERS Safety Report 6173797-0 (Version None)
Quarter: 2009Q2

REPORT INFORMATION
  Report Type: 
  Country: None (occurrence: None)
  Receive Date: 20090429
  Receipt Date: 20090429
  Transmission Date: 20091009
  Serious: Yes (Other)
  Sender: FDA-Public Use
  Company Number: None

PATIENT
  Sex: Male
  Weight: 117.9352 kg

DRUGS (3)
  1. SIMVASTATIN [Suspect]
     Dosage: ONCE A DAY
     Dates: start: 20081201
  2. SIMVASTATIN [Suspect]
     Dosage: ONCE A DAY
     Dates: start: 20090101
  3. SIMVASTATIN [Suspect]
     Dosage: ONCE A DAY
     Dates: start: 20090201

REACTIONS (3)
  - ABDOMINAL PAIN [None]
  - ABNORMAL FAECES [None]
  - PRODUCT SUBSTITUTION ISSUE [None]
